FAERS Safety Report 21414942 (Version 4)
Quarter: 2022Q4

REPORT INFORMATION
  Report Type: Report from Study
  Country: US (occurrence: US)
  Receive Date: 20221006
  Receipt Date: 20221226
  Transmission Date: 20230113
  Serious: Yes (Other)
  Sender: FDA-Public Use
  Company Number: US-ABBVIE-4140755

PATIENT
  Sex: Female

DRUGS (2)
  1. HUMIRA [Suspect]
     Active Substance: ADALIMUMAB
     Indication: Psoriatic arthropathy
     Dosage: 40 MG FORM STRENGTH/CITRATE FREE
     Route: 058
     Dates: start: 20200725
  2. HUMIRA [Suspect]
     Active Substance: ADALIMUMAB
     Indication: Psoriasis

REACTIONS (7)
  - Retinopathy [Recovering/Resolving]
  - Visual impairment [Recovering/Resolving]
  - Eye infection [Recovering/Resolving]
  - Seasonal allergy [Recovered/Resolved]
  - Diabetes mellitus [Unknown]
  - Constipation [Unknown]
  - Knee operation [Recovering/Resolving]

NARRATIVE: CASE EVENT DATE: 20220101
